FAERS Safety Report 19111076 (Version 2)
Quarter: 2021Q2

REPORT INFORMATION
  Report Type: Spontaneous
  Country: US (occurrence: US)
  Receive Date: 20210408
  Receipt Date: 20210408
  Transmission Date: 20210717
  Serious: Yes (Other)
  Sender: FDA-Public Use
  Company Number: US-CELGENEUS-USA-20210400401

PATIENT
  Sex: Male
  Weight: 64.47 kg

DRUGS (10)
  1. REVLIMID [Suspect]
     Active Substance: LENALIDOMIDE
     Indication: THROMBOCYTOSIS
  2. MYRBETRIQ [Concomitant]
     Active Substance: MIRABEGRON
     Indication: PRODUCT USED FOR UNKNOWN INDICATION
     Route: 065
  3. VITAMIN D [Concomitant]
     Active Substance: VITAMIN D NOS
     Indication: ESSENTIAL TREMOR
     Route: 065
  4. GLIPIZIDE. [Concomitant]
     Active Substance: GLIPIZIDE
     Route: 065
  5. REVLIMID [Suspect]
     Active Substance: LENALIDOMIDE
     Indication: MYELOFIBROSIS
     Dosage: 10 MILLIGRAM
     Route: 048
     Dates: start: 20200821, end: 20201210
  6. PRIMIDONE. [Concomitant]
     Active Substance: PRIMIDONE
     Indication: ESSENTIAL TREMOR
     Route: 065
  7. MELOXICAM. [Concomitant]
     Active Substance: MELOXICAM
     Indication: ARTHRITIS
     Route: 065
     Dates: end: 20201106
  8. REVLIMID [Suspect]
     Active Substance: LENALIDOMIDE
     Indication: OFF LABEL USE
  9. GLIPIZIDE. [Concomitant]
     Active Substance: GLIPIZIDE
     Indication: DIABETES MELLITUS
     Route: 065
     Dates: start: 20201106
  10. MULTIVITAMINS [Concomitant]
     Active Substance: VITAMINS
     Indication: ESSENTIAL TREMOR
     Route: 065

REACTIONS (17)
  - Essential tremor [Unknown]
  - Increased tendency to bruise [Unknown]
  - Cognitive disorder [Unknown]
  - Renal failure [Unknown]
  - Laboratory test abnormal [Unknown]
  - Fatigue [Unknown]
  - Abdominal pain [Recovered/Resolved]
  - Back pain [Unknown]
  - Blood glucose increased [Unknown]
  - Unevaluable event [Unknown]
  - Weight decreased [Unknown]
  - Haemoglobin decreased [Unknown]
  - Urinary incontinence [Recovering/Resolving]
  - Dementia Alzheimer^s type [Unknown]
  - Insomnia [Unknown]
  - Dyspepsia [Recovered/Resolved]
  - Appetite disorder [Unknown]

NARRATIVE: CASE EVENT DATE: 2020
